FAERS Safety Report 7291690-7 (Version None)
Quarter: 2011Q1

REPORT INFORMATION
  Report Type: 
  Country: None (occurrence: None)
  Receive Date: 20110210
  Receipt Date: 20110210
  Transmission Date: 20110831
  Serious: Yes (Other)
  Sender: FDA-Public Use
  Company Number: None

PATIENT
  Age: 29 Year
  Sex: Female
  Weight: 77.1115 kg

DRUGS (1)
  1. REMICADE [Suspect]
     Indication: CROHN'S DISEASE
     Dosage: Q 8 WEEKS IV DRIP
     Route: 041
     Dates: start: 20100601, end: 20110101

REACTIONS (2)
  - IIIRD NERVE PARALYSIS [None]
  - INFECTION [None]
